FAERS Safety Report 8126377-1 (Version None)
Quarter: 2012Q1

REPORT INFORMATION
  Report Type: 
  Country: None (occurrence: None)
  Receive Date: 20120209
  Receipt Date: 20120203
  Transmission Date: 20120608
  Serious: Yes (Other)
  Sender: FDA-Public Use
  Company Number: JP-MERCK-1111USA02792

PATIENT
  Age: 4 Year
  Sex: Male
  Weight: 16 kg

DRUGS (8)
  1. MUCODYNE [Concomitant]
     Route: 048
     Dates: start: 20100811
  2. INTAL [Concomitant]
     Route: 055
  3. PULMICORT-100 [Concomitant]
     Route: 065
  4. MEPTIN [Concomitant]
     Route: 048
     Dates: start: 20100811
  5. ZADITEN [Suspect]
     Indication: URTICARIA
     Route: 048
     Dates: start: 20101127, end: 20110202
  6. MUCOSOLVAN [Concomitant]
     Route: 048
     Dates: start: 20100811
  7. SINGULAIR [Suspect]
     Indication: ASTHMA PROPHYLAXIS
     Route: 048
     Dates: start: 20100811, end: 20111030
  8. CLARITIN [Concomitant]
     Indication: URTICARIA
     Route: 048
     Dates: start: 20101125, end: 20110630

REACTIONS (1)
  - PETIT MAL EPILEPSY [None]
